FAERS Safety Report 12487247 (Version 1)
Quarter: 2016Q2

REPORT INFORMATION
  Report Type: Spontaneous
  Country: US (occurrence: None)
  Receive Date: 20160621
  Receipt Date: 20160621
  Transmission Date: 20160815
  Serious: Yes (Hospitalization, Disabling, Other)
  Sender: FDA-Public Use
  Company Number: None

PATIENT
  Age: 45 Year
  Sex: Female
  Weight: 49.9 kg

DRUGS (3)
  1. LAMISIL [Suspect]
     Active Substance: TERBINAFINE HYDROCHLORIDE
     Indication: ONYCHOMYCOSIS
  2. LAMISIL [Suspect]
     Active Substance: TERBINAFINE HYDROCHLORIDE
     Route: 048
     Dates: start: 20140301, end: 20140630
  3. ADVIL [Concomitant]
     Active Substance: IBUPROFEN

REACTIONS (12)
  - Vulvovaginal mycotic infection [None]
  - Dehydration [None]
  - Chest pain [None]
  - Menstrual disorder [None]
  - Onychoclasis [None]
  - Dyspnoea [None]
  - Anxiety [None]
  - Constipation [None]
  - Rash [None]
  - Weight decreased [None]
  - Depression [None]
  - Hair texture abnormal [None]

NARRATIVE: CASE EVENT DATE: 20140501
